FAERS Safety Report 4316484-3 (Version None)
Quarter: 2004Q1

REPORT INFORMATION
  Report Type: 
  Country: None (occurrence: None)
  Receive Date: 20040311
  Receipt Date: 20040224
  Transmission Date: 20041129
  Serious: Yes (Hospitalization)
  Sender: FDA-Public Use
  Company Number: 235513

PATIENT
  Age: 54 Year
  Sex: Female
  Weight: 70 kg

DRUGS (2)
  1. ACTIVELLE [Suspect]
     Dates: start: 20001001, end: 20030901
  2. BISOPROLOL FUMARATE [Concomitant]

REACTIONS (13)
  - BLOOD CHOLESTEROL INCREASED [None]
  - BRADYCARDIA [None]
  - CIRCULATORY COLLAPSE [None]
  - CONTUSION [None]
  - ENCEPHALOPATHY [None]
  - HAEMORRHAGE INTRACRANIAL [None]
  - HYPOTENSION [None]
  - LACUNAR INFARCTION [None]
  - MALFORMATION VENOUS [None]
  - SUPRAVENTRICULAR EXTRASYSTOLES [None]
  - VENOUS ANGIOMA OF BRAIN [None]
  - VENTRICULAR EXTRASYSTOLES [None]
  - VERTIGO [None]
